FAERS Safety Report 4709217-X (Version None)
Quarter: 2005Q3

REPORT INFORMATION
  Report Type: 
  Country: None (occurrence: None)
  Receive Date: 20050707
  Receipt Date: 20050707
  Transmission Date: 20060218
  Serious: Yes (Hospitalization, Other)
  Sender: FDA-Public Use
  Company Number: None

PATIENT
  Sex: Male
  Weight: 70.5 kg

DRUGS (2)
  1. CISPLATIN [Suspect]
     Dosage: 60 MG/M2 IV DAY 1 Q 21 DAYS X 4 CYCLES
     Dates: start: 20050504
  2. ETOPOSIDE [Suspect]
     Dosage: 120 MG/M2 IV DAY 1-2-3 Q 21 DAYS X 4 CYCLES

REACTIONS (4)
  - APHAGIA [None]
  - GENERAL PHYSICAL CONDITION ABNORMAL [None]
  - NAUSEA [None]
  - VOMITING [None]
